FAERS Safety Report 19532913 (Version 1)
Quarter: 2021Q3

REPORT INFORMATION
  Report Type: Report from Study
  Country: US (occurrence: US)
  Receive Date: 20210714
  Receipt Date: 20210714
  Transmission Date: 20211014
  Serious: Yes (Hospitalization)
  Sender: FDA-Public Use
  Company Number: US-ASTELLAS-2021US021764

PATIENT
  Sex: Male

DRUGS (1)
  1. ENZALUTAMIDE [Suspect]
     Active Substance: ENZALUTAMIDE
     Indication: PROSTATE CANCER
     Route: 048
     Dates: start: 20210514

REACTIONS (9)
  - Prostatic specific antigen increased [Unknown]
  - Nausea [Unknown]
  - Hot flush [Unknown]
  - Constipation [Unknown]
  - Feeling abnormal [Unknown]
  - Panic attack [Unknown]
  - Condition aggravated [Unknown]
  - Abdominal discomfort [Unknown]
  - Pain [Recovering/Resolving]
